FAERS Safety Report 9720218 (Version 2)
Quarter: 2014Q1

REPORT INFORMATION
  Report Type: Spontaneous
  Country: US (occurrence: US)
  Receive Date: 20131129
  Receipt Date: 20140124
  Transmission Date: 20141002
  Serious: Yes (Other)
  Sender: FDA-Public Use
  Company Number: US-JNJFOC-20131111272

PATIENT
  Age: 73 Year
  Sex: Female
  Weight: 58.97 kg

DRUGS (9)
  1. TYLENOL SINUS CONGESTION AND PAIN DAYTIME [Suspect]
     Route: 048
  2. TYLENOL SINUS CONGESTION AND PAIN DAYTIME [Suspect]
     Indication: NASOPHARYNGITIS
     Route: 048
     Dates: start: 20131115, end: 20131117
  3. DILANTIN [Concomitant]
     Indication: CONVULSION PROPHYLAXIS
     Route: 065
     Dates: start: 1972
  4. PHENERGAN [Concomitant]
     Indication: NAUSEA
     Route: 065
  5. PROTONIX [Concomitant]
     Indication: POSTOPERATIVE CARE
     Route: 065
  6. LASIX [Concomitant]
     Indication: FLUID RETENTION
     Route: 065
  7. MELOXICAM [Concomitant]
     Indication: ARTHRITIS
     Route: 065
  8. VALIUM [Concomitant]
     Indication: CONVULSION PROPHYLAXIS
     Route: 065
  9. CALCIUM [Concomitant]
     Indication: MINERAL SUPPLEMENTATION
     Route: 065

REACTIONS (3)
  - Heart rate abnormal [Recovered/Resolved]
  - Blood pressure increased [Recovered/Resolved]
  - Vomiting [Unknown]
